FAERS Safety Report 8713092 (Version 2)
Quarter: 2012Q4

REPORT INFORMATION
  Report Type: 
  Country: JP (occurrence: JP)
  Receive Date: 20120808
  Receipt Date: 20120918
  Transmission Date: 20130627
  Serious: Yes (Other)
  Sender: FDA-Public Use
  Company Number: JP-PFIZER INC-2012187106

PATIENT
  Age: 63 Year
  Sex: Female

DRUGS (2)
  1. AZULFIDINE EN [Suspect]
     Indication: RHEUMATOID ARTHRITIS
     Dosage: 500 mg, 2x/day
     Route: 048
     Dates: start: 20120517, end: 20120705
  2. DEPAS [Concomitant]
     Indication: ANXIETY DISORDER
     Dosage: 0.5 mg, 2x/day
     Route: 048
     Dates: start: 20120611, end: 20120611

REACTIONS (1)
  - Granulocytopenia [Recovered/Resolved]
